FAERS Safety Report 4824651-5 (Version None)
Quarter: 2005Q4

REPORT INFORMATION
  Report Type: 
  Country: None (occurrence: None)
  Receive Date: 20051108
  Receipt Date: 20051028
  Transmission Date: 20060501
  Serious: Yes (Other)
  Sender: FDA-Public Use
  Company Number: GBS051018942

PATIENT
  Age: 55 Year
  Sex: Female
  Weight: 106 kg

DRUGS (5)
  1. CYMBALTA [Suspect]
     Indication: DEPRESSION
     Dosage: 60 MG
     Dates: start: 20051013, end: 20051014
  2. SOLPADOL [Concomitant]
  3. DICLOFENAC [Concomitant]
  4. PEPPERMINT OIL [Concomitant]
  5. OMEPRAZOLE [Concomitant]

REACTIONS (5)
  - ANXIETY [None]
  - DIARRHOEA [None]
  - HALLUCINATION [None]
  - INSOMNIA [None]
  - NAUSEA [None]
